FAERS Safety Report 6778999-8 (Version None)
Quarter: 2010Q2

REPORT INFORMATION
  Report Type: 
  Country: None (occurrence: None)
  Receive Date: 20100618
  Receipt Date: 20100615
  Transmission Date: 20101027
  Serious: Yes (Other)
  Sender: FDA-Public Use
  Company Number: JP-PFIZER INC-2010074726

PATIENT
  Age: 90 Year
  Sex: Female

DRUGS (6)
  1. CELECOX [Suspect]
     Dosage: 200 MG,  DAILY
     Route: 048
  2. RINDERON [Concomitant]
     Dosage: UNK
     Route: 048
  3. MEVALOTIN [Concomitant]
     Dosage: UNK
     Route: 048
  4. MAGNESIUM OXIDE [Concomitant]
     Dosage: UNK
     Route: 048
  5. FRANDOL [Concomitant]
     Dosage: UNK
  6. MARZULENE [Concomitant]
     Dosage: UNK
     Route: 048

REACTIONS (2)
  - ERYTHEMA [None]
  - HALLUCINATION [None]
